FAERS Safety Report 18857770 (Version 2)
Quarter: 2021Q1

REPORT INFORMATION
  Report Type: Spontaneous
  Country: FR (occurrence: FR)
  Receive Date: 20210208
  Receipt Date: 20210218
  Transmission Date: 20210420
  Serious: Yes (Life-Threatening, Other)
  Sender: FDA-Public Use
  Company Number: FR-AUROBINDO-AUR-APL-2021-005077

PATIENT
  Age: 53 Year
  Sex: Female

DRUGS (18)
  1. MELPHALAN. [Suspect]
     Active Substance: MELPHALAN
     Indication: BONE LESION
  2. DEXAMETHASONE. [Suspect]
     Active Substance: DEXAMETHASONE
     Indication: BONE LESION
  3. MELPHALAN. [Suspect]
     Active Substance: MELPHALAN
     Indication: AUTOLOGOUS HAEMATOPOIETIC STEM CELL TRANSPLANT
     Dosage: 200 MILLIGRAM/SQ. METER
     Route: 042
  4. MELPHALAN. [Suspect]
     Active Substance: MELPHALAN
     Indication: PLASMA CELL MYELOMA
  5. DEXAMETHASONE. [Suspect]
     Active Substance: DEXAMETHASONE
     Indication: PLASMA CELL MYELOMA
     Dosage: 40 MILLIGRAM, TWICE WEEKLY REPEATED EVERY 21 DAYS
     Route: 048
  6. PLERIXAFOR [Suspect]
     Active Substance: PLERIXAFOR
     Indication: APHERESIS
     Dosage: 16 MILLIGRAM
     Route: 058
  7. PLERIXAFOR [Suspect]
     Active Substance: PLERIXAFOR
     Indication: PLASMA CELL MYELOMA
  8. RITUXIMAB. [Suspect]
     Active Substance: RITUXIMAB
     Indication: HAEMOPHAGOCYTIC LYMPHOHISTIOCYTOSIS
     Dosage: 375 MILLIGRAM/SQ. METER
     Route: 065
  9. FILGRASTIM [Suspect]
     Active Substance: FILGRASTIM
     Indication: PLASMA CELL MYELOMA
     Dosage: 10 MICROGRAM/KILOGRAM (DURING 7 DAYS)
     Route: 058
  10. FILGRASTIM [Suspect]
     Active Substance: FILGRASTIM
     Indication: BONE LESION
  11. VELCADE [Suspect]
     Active Substance: BORTEZOMIB
     Indication: BONE LESION
     Dosage: 1.3 MILLIGRAM/SQ. METER, EVERY WEEK
     Route: 058
  12. THALIDOMIDE [Suspect]
     Active Substance: THALIDOMIDE
     Indication: BONE LESION
  13. PLERIXAFOR [Suspect]
     Active Substance: PLERIXAFOR
     Indication: BONE LESION
  14. VELCADE [Suspect]
     Active Substance: BORTEZOMIB
     Indication: PLASMA CELL MYELOMA
     Dosage: 1.3 MILLIGRAM/SQ. METER, EVERY WEEK
     Route: 042
  15. CYCLOPHOSPHAMIDE. [Suspect]
     Active Substance: CYCLOPHOSPHAMIDE
     Indication: PLASMA CELL MYELOMA
     Dosage: 300 MILLIGRAM/SQ. METER, EVERY WEEK
     Route: 048
  16. CYCLOPHOSPHAMIDE. [Suspect]
     Active Substance: CYCLOPHOSPHAMIDE
     Indication: BONE LESION
  17. ETOPOSIDE. [Suspect]
     Active Substance: ETOPOSIDE
     Indication: HAEMOPHAGOCYTIC LYMPHOHISTIOCYTOSIS
     Dosage: 150 MILLIGRAM/SQ. METER
     Route: 065
  18. THALIDOMIDE [Suspect]
     Active Substance: THALIDOMIDE
     Indication: PLASMA CELL MYELOMA
     Dosage: 100 MILLIGRAM, DAILY
     Route: 065

REACTIONS (5)
  - Haemophagocytic lymphohistiocytosis [Unknown]
  - Myelodysplastic syndrome [Recovering/Resolving]
  - Pancytopenia [Unknown]
  - Hepatitis [Unknown]
  - Vanishing bile duct syndrome [Unknown]
